FAERS Safety Report 8399905-9 (Version None)
Quarter: 2012Q2

REPORT INFORMATION
  Report Type: 
  Country: None (occurrence: None)
  Receive Date: 20120531
  Receipt Date: 20120521
  Transmission Date: 20120825
  Serious: Yes (Other)
  Sender: FDA-Public Use
  Company Number: US-ELI_LILLY_AND_COMPANY-US201103001563

PATIENT
  Sex: Female

DRUGS (9)
  1. FORTEO [Suspect]
     Dosage: 20 UG, QD
     Route: 065
  2. FORTEO [Suspect]
     Dosage: 20 UG, QD
     Route: 065
  3. FORTEO [Suspect]
     Dosage: 20 UG, QD
     Route: 065
  4. NEURONTIN [Concomitant]
     Indication: FIBROMYALGIA
  5. FORTEO [Suspect]
     Dosage: 20 UG, QD
     Route: 065
  6. FORTEO [Suspect]
     Dosage: 20 UG, QD
     Route: 065
  7. FORTEO [Suspect]
     Indication: OSTEOPOROSIS
     Dosage: 20 UG, QD
     Route: 065
     Dates: start: 20110131
  8. FORTEO [Suspect]
     Dosage: 20 UG, QD
     Route: 065
  9. FORTEO [Suspect]
     Dosage: 20 UG, QD
     Route: 065

REACTIONS (40)
  - NODULE [None]
  - INSOMNIA [None]
  - INJECTION SITE HAEMATOMA [None]
  - FIBROMYALGIA [None]
  - HEART RATE INCREASED [None]
  - BACK PAIN [None]
  - GAIT DISTURBANCE [None]
  - DRUG DOSE OMISSION [None]
  - NEURALGIA [None]
  - MUSCULAR WEAKNESS [None]
  - CREST SYNDROME [None]
  - COLLAGEN DISORDER [None]
  - HYPOAESTHESIA [None]
  - PAIN IN EXTREMITY [None]
  - ARTHROPATHY [None]
  - CALCINOSIS [None]
  - ANXIETY [None]
  - PAIN [None]
  - ARTHRALGIA [None]
  - HEADACHE [None]
  - MEMORY IMPAIRMENT [None]
  - BONE DISORDER [None]
  - MOBILITY DECREASED [None]
  - TREMOR [None]
  - WEIGHT DECREASED [None]
  - NAUSEA [None]
  - RAYNAUD'S PHENOMENON [None]
  - ANGIOPATHY [None]
  - RASH [None]
  - FALL [None]
  - TRANSIENT ISCHAEMIC ATTACK [None]
  - MUSCULOSKELETAL STIFFNESS [None]
  - FATIGUE [None]
  - CONSTIPATION [None]
  - NECK PAIN [None]
  - LACUNAR INFARCTION [None]
  - CEREBROVASCULAR ACCIDENT [None]
  - NEUROMA [None]
  - JOINT STIFFNESS [None]
  - MUSCLE SPASMS [None]
